FAERS Safety Report 11451390 (Version 1)
Quarter: 2015Q3

REPORT INFORMATION
  Report Type: Spontaneous
  Country: None (occurrence: None)
  Receive Date: 20150902
  Receipt Date: 20150902
  Transmission Date: 20151125
  Serious: Yes (Other)
  Sender: FDA-Public Use
  Company Number: None

PATIENT
  Age: 58 Year
  Sex: Female

DRUGS (3)
  1. EMERGENCY INHALER [Concomitant]
     Active Substance: UNSPECIFIED INGREDIENT
  2. LORATIDINE [Concomitant]
     Active Substance: LORATADINE
  3. FLOVENT HFA [Suspect]
     Active Substance: FLUTICASONE PROPIONATE
     Indication: ASTHMA
     Dates: start: 20140804, end: 20140805

REACTIONS (9)
  - Choking [None]
  - Swelling face [None]
  - Cough [None]
  - Wheezing [None]
  - Swollen tongue [None]
  - Pharyngeal oedema [None]
  - Malaise [None]
  - Mouth swelling [None]
  - Middle ear effusion [None]

NARRATIVE: CASE EVENT DATE: 20140805
